FAERS Safety Report 5232988-3 (Version None)
Quarter: 2007Q1

REPORT INFORMATION
  Report Type: 
  Country: None (occurrence: None)
  Receive Date: 20070207
  Receipt Date: 20070125
  Transmission Date: 20070707
  Serious: Yes (Hospitalization, Other)
  Sender: FDA-Public Use
  Company Number: US-SHR-US-2006-002328

PATIENT
  Age: 55 Year
  Sex: Female
  Weight: 54.422 kg

DRUGS (3)
  1. BETASERON [Suspect]
     Indication: SECONDARY PROGRESSIVE MULTIPLE SCLEROSIS
     Dosage: 8 MIU, EVERY 2D
     Route: 058
     Dates: start: 20050428, end: 20060801
  2. LITHIUM CARBONATE [Concomitant]
     Dosage: 445 MG/HS, 225 MG 2D/WEEK
     Route: 048
  3. SYNTHROID [Concomitant]

REACTIONS (10)
  - ASTHENIA [None]
  - BALANCE DISORDER [None]
  - BLINDNESS [None]
  - COGNITIVE DISORDER [None]
  - DEAFNESS [None]
  - DRUG INEFFECTIVE [None]
  - FALL [None]
  - GAIT DISTURBANCE [None]
  - SECONDARY PROGRESSIVE MULTIPLE SCLEROSIS [None]
  - WEIGHT DECREASED [None]
